FAERS Safety Report 5430098-3 (Version None)
Quarter: 2007Q3

REPORT INFORMATION
  Report Type: 
  Country: None (occurrence: None)
  Receive Date: 20070829
  Receipt Date: 20070821
  Transmission Date: 20080115
  Serious: Yes (Hospitalization, Other)
  Sender: FDA-Public Use
  Company Number: US-MERCK-0708USA03941

PATIENT
  Age: 61 Year
  Sex: Female
  Weight: 71 kg

DRUGS (5)
  1. ZETIA [Suspect]
     Route: 048
     Dates: start: 20060101, end: 20070501
  2. ENBREL [Suspect]
     Indication: RHEUMATOID ARTHRITIS
     Route: 058
     Dates: start: 20030701, end: 20070614
  3. LEVOXYL [Concomitant]
     Route: 065
  4. TIMOPTIC [Concomitant]
     Route: 065
  5. LUMIGAN [Concomitant]
     Route: 065

REACTIONS (4)
  - FALL [None]
  - POLYMYOSITIS [None]
  - RADICULOPATHY [None]
  - SYSTEMIC LUPUS ERYTHEMATOSUS [None]
